FAERS Safety Report 25632615 (Version 1)
Quarter: 2025Q3

REPORT INFORMATION
  Report Type: Report from Study
  Country: US (occurrence: US)
  Receive Date: 20250801
  Receipt Date: 20250801
  Transmission Date: 20251021
  Serious: Yes (Hospitalization, Other)
  Sender: UCB
  Company Number: US-UCBSA-2025046274

PATIENT
  Age: 41 Year
  Sex: Female

DRUGS (1)
  1. BIMEKIZUMAB [Suspect]
     Active Substance: BIMEKIZUMAB
     Indication: Psoriasis
     Dosage: 320 MILLIGRAM, EV 4 WEEKS
     Route: 058
     Dates: start: 20250130, end: 20250521

REACTIONS (3)
  - Escherichia infection [Recovered/Resolved with Sequelae]
  - Kidney infection [Recovered/Resolved with Sequelae]
  - Pneumonia [Recovered/Resolved with Sequelae]

NARRATIVE: CASE EVENT DATE: 20250612
